FAERS Safety Report 6069629-1 (Version None)
Quarter: 2009Q1

REPORT INFORMATION
  Report Type: 
  Country: None (occurrence: None)
  Receive Date: 20090209
  Receipt Date: 20090202
  Transmission Date: 20090719
  Serious: Yes (Other)
  Sender: FDA-Public Use
  Company Number: BR-JNJFOC-20090200668

PATIENT
  Age: 14 Year
  Sex: Female
  Weight: 34 kg

DRUGS (3)
  1. HALDOL [Suspect]
     Indication: SCHIZOPHRENIA
     Route: 048
  2. CINTILAN [Concomitant]
     Route: 048
  3. GAMAR [Concomitant]
     Indication: MEMORY IMPAIRMENT
     Route: 048

REACTIONS (11)
  - ACTIVITIES OF DAILY LIVING IMPAIRED [None]
  - AGITATION [None]
  - AMENORRHOEA [None]
  - BREAST SWELLING [None]
  - CHEST PAIN [None]
  - DYSKINESIA [None]
  - DYSPNOEA [None]
  - GAIT DISTURBANCE [None]
  - HYPOTENSION [None]
  - MUSCLE RIGIDITY [None]
  - SWELLING FACE [None]
